FAERS Safety Report 10733963 (Version 1)
Quarter: 2015Q1

REPORT INFORMATION
  Report Type: Spontaneous
  Country: US (occurrence: None)
  Receive Date: 20150121
  Receipt Date: 20150121
  Transmission Date: 20150721
  Serious: Yes (Other)
  Sender: FDA-Public Use
  Company Number: 2015EXPUS00296

PATIENT
  Age: 30 Year
  Sex: Female

DRUGS (5)
  1. EXPAREL [Suspect]
     Active Substance: BUPIVACAINE
     Dosage: 20 ML VIAL MIXED IN 40 ML NORMAL SALINE. OTHER
     Dates: start: 201501, end: 201501
  2. CIPROFLOXACIN. [Concomitant]
     Active Substance: CIPROFLOXACIN
  3. EXPAREL [Suspect]
     Active Substance: BUPIVACAINE
     Indication: POSTOPERATIVE ANALGESIA
     Dosage: 20 ML VIAL MIXED IN 40 ML NORMAL SALINE. OTHER
     Dates: start: 201501, end: 201501
  4. FLAGYL [Suspect]
     Active Substance: METRONIDAZOLE\METRONIDAZOLE HYDROCHLORIDE
     Indication: URINARY TRACT INFECTION
     Dates: start: 201501
  5. TETRACYCLINE [Concomitant]
     Active Substance: TETRACYCLINE

REACTIONS (1)
  - Stevens-Johnson syndrome [None]

NARRATIVE: CASE EVENT DATE: 201501
